FAERS Safety Report 7285389-0 (Version None)
Quarter: 2011Q1

REPORT INFORMATION
  Report Type: 
  Country: None (occurrence: None)
  Receive Date: 20110210
  Receipt Date: 20110202
  Transmission Date: 20110831
  Serious: Yes (Death)
  Sender: FDA-Public Use
  Company Number: B0698778A

PATIENT
  Age: 68 Year
  Sex: Male

DRUGS (1)
  1. ARZERRA [Suspect]

REACTIONS (3)
  - FEBRILE NEUTROPENIA [None]
  - SEPSIS [None]
  - HISTIOCYTOSIS HAEMATOPHAGIC [None]
